FAERS Safety Report 9004741 (Version 1)
Quarter: 2012Q4

REPORT INFORMATION
  Report Type: Spontaneous
  Country: JP (occurrence: None)
  Receive Date: 20121227
  Receipt Date: 20121227
  Transmission Date: 20130627
  Serious: Yes (Other)
  Sender: FDA-Public Use
  Company Number: SPI201200380

PATIENT
  Age: 48 Year
  Sex: Female

DRUGS (1)
  1. AMITIZA (LUBIPROSTONE) [Suspect]
     Indication: CONSTIPATION
     Route: 048
     Dates: start: 20121122, end: 20121130

REACTIONS (3)
  - Hot flush [None]
  - Nausea [None]
  - Dyspnoea [None]
